FAERS Safety Report 4275172-2 (Version None)
Quarter: 2004Q1

REPORT INFORMATION
  Report Type: 
  Country: None (occurrence: None)
  Receive Date: 20040116
  Receipt Date: 29931229
  Transmission Date: 20041129
  Serious: Yes (Hospitalization)
  Sender: FDA-Public Use
  Company Number: RENA-10838

PATIENT
  Age: 63 Year
  Sex: Female

DRUGS (1)
  1. RENAGEL [Suspect]
     Indication: HYPERPHOSPHATAEMIA
     Dosage: 1.5 G DAILY PO
     Dates: start: 20030709, end: 20030714

REACTIONS (2)
  - DIVERTICULUM INTESTINAL [None]
  - PERITONITIS [None]
